FAERS Safety Report 12322439 (Version 2)
Quarter: 2016Q2

REPORT INFORMATION
  Report Type: Report from Study
  Country: US (occurrence: US)
  Receive Date: 20160502
  Receipt Date: 20160523
  Transmission Date: 20160815
  Serious: Yes (Hospitalization, Other)
  Sender: FDA-Public Use
  Company Number: US-GILEAD-2016-0211384

PATIENT
  Age: 72 Year
  Sex: Male

DRUGS (5)
  1. SIMVASTATIN. [Concomitant]
     Active Substance: SIMVASTATIN
  2. ADVAIR HFA [Concomitant]
     Active Substance: FLUTICASONE PROPIONATE\SALMETEROL XINAFOATE
  3. FOSINOPRIL [Concomitant]
     Active Substance: FOSINOPRIL
  4. AMBRISENTAN [Suspect]
     Active Substance: AMBRISENTAN
     Indication: PULMONARY ARTERIAL HYPERTENSION
     Dosage: 5 MG, QD
     Route: 048
     Dates: start: 20101101
  5. METFORMIN [Concomitant]
     Active Substance: METFORMIN HYDROCHLORIDE

REACTIONS (3)
  - Oxygen saturation decreased [Not Recovered/Not Resolved]
  - Blood glucose increased [Unknown]
  - Pneumonia [Recovered/Resolved]

NARRATIVE: CASE EVENT DATE: 20160405
